FAERS Safety Report 12797663 (Version 1)
Quarter: 2016Q3

REPORT INFORMATION
  Report Type: Spontaneous
  Country: US (occurrence: US)
  Receive Date: 20160929
  Receipt Date: 20160929
  Transmission Date: 20161109
  Serious: Yes (Hospitalization)
  Sender: FDA-Public Use
  Company Number: None

PATIENT
  Age: 81 Year
  Sex: Male
  Weight: 53.55 kg

DRUGS (10)
  1. OMEPRAZOLE. [Concomitant]
     Active Substance: OMEPRAZOLE
  2. IMODIUM [Concomitant]
     Active Substance: LOPERAMIDE HYDROCHLORIDE
  3. PEMBROLIZUMAB. [Suspect]
     Active Substance: PEMBROLIZUMAB
     Indication: NON-SMALL CELL LUNG CANCER
     Dosage: ?          OTHER FREQUENCY:EVERY 3 WEEKS;?
     Dates: start: 20160816
  4. COLACE [Concomitant]
     Active Substance: DOCUSATE SODIUM
  5. FLOMAX [Concomitant]
     Active Substance: TAMSULOSIN HYDROCHLORIDE
  6. PANCREALIPASE [Concomitant]
     Active Substance: PANCRELIPASE
  7. ZOFRAN [Concomitant]
     Active Substance: ONDANSETRON HYDROCHLORIDE
  8. VALSARTAN. [Concomitant]
     Active Substance: VALSARTAN
  9. LOMOTIL [Concomitant]
     Active Substance: ATROPINE SULFATE\DIPHENOXYLATE HYDROCHLORIDE
  10. ASA [Concomitant]
     Active Substance: ASPIRIN

REACTIONS (8)
  - Decreased appetite [None]
  - Abdominal pain [None]
  - Fatigue [None]
  - Gastrointestinal motility disorder [None]
  - Weight decreased [None]
  - Dizziness postural [None]
  - Pain [None]
  - Dizziness [None]

NARRATIVE: CASE EVENT DATE: 20160928
